FAERS Safety Report 18001079 (Version 2)
Quarter: 2020Q4

REPORT INFORMATION
  Report Type: Spontaneous
  Country: US (occurrence: US)
  Receive Date: 20200709
  Receipt Date: 20201007
  Transmission Date: 20210113
  Serious: Yes (Other)
  Sender: FDA-Public Use
  Company Number: US-ASTRAZENECA-2018SF48113

PATIENT
  Age: 26476 Day
  Sex: Female

DRUGS (28)
  1. KLOR-CON [Concomitant]
     Active Substance: POTASSIUM CHLORIDE
     Dosage: 10.0MG UNKNOWN
     Route: 048
     Dates: start: 20130203
  2. DULOXETINE. [Concomitant]
     Active Substance: DULOXETINE
     Dosage: 60.0MG UNKNOWN
     Route: 048
     Dates: start: 20140221
  3. ROPINIROLE. [Concomitant]
     Active Substance: ROPINIROLE
     Dosage: 1.0MG UNKNOWN
     Route: 048
     Dates: start: 20131003
  4. HYDROCODONE BITARTRATE AND ACETAMINOPHEN [Concomitant]
     Active Substance: ACETAMINOPHEN\HYDROCODONE BITARTRATE
     Dosage: 10.0MG UNKNOWN
     Route: 048
     Dates: start: 20140109
  5. ERYTHROMYCIN. [Concomitant]
     Active Substance: ERYTHROMYCIN
     Dosage: 5GM/GM
     Dates: start: 20140203
  6. NEXIUM [Suspect]
     Active Substance: ESOMEPRAZOLE MAGNESIUM
     Dosage: 40.0MG UNKNOWN
     Route: 048
     Dates: start: 20140318
  7. SPIRONOLACTONE. [Concomitant]
     Active Substance: SPIRONOLACTONE
     Dosage: 25.0MG UNKNOWN
     Route: 048
     Dates: start: 20131003
  8. LEVETIRACETAM. [Concomitant]
     Active Substance: LEVETIRACETAM
     Dosage: 500.0MG UNKNOWN
     Route: 048
     Dates: start: 20140109
  9. XOPENEX [Concomitant]
     Active Substance: LEVALBUTEROL HYDROCHLORIDE
     Dosage: 45.0MG UNKNOWN
     Route: 048
     Dates: start: 20140110
  10. ATORVASTATIN CALCIUM. [Concomitant]
     Active Substance: ATORVASTATIN CALCIUM
     Dates: start: 20131003
  11. LANSOPRAZOLE. [Suspect]
     Active Substance: LANSOPRAZOLE
     Route: 065
  12. ALPRAZOLAM. [Concomitant]
     Active Substance: ALPRAZOLAM
     Dosage: 1.0MG UNKNOWN
     Route: 048
     Dates: start: 20140109
  13. TIZANIDINE. [Concomitant]
     Active Substance: TIZANIDINE
     Dosage: 4.0MG UNKNOWN
     Route: 048
     Dates: start: 20131209
  14. LEVOTHYROXINE SODIUM. [Concomitant]
     Active Substance: LEVOTHYROXINE SODIUM
     Dates: start: 20131003
  15. NEXIUM [Suspect]
     Active Substance: ESOMEPRAZOLE MAGNESIUM
     Dosage: FOR VARIOUS DATES AND YEARS
     Route: 048
  16. PRILOSEC [Suspect]
     Active Substance: OMEPRAZOLE MAGNESIUM
     Route: 048
  17. LIDODERM [Concomitant]
     Active Substance: LIDOCAINE
     Dosage: 5 % TOPICAL
     Dates: start: 20131205
  18. APAP/BUTALBITAL/CAFF [Concomitant]
     Dates: start: 20140109
  19. HOMATROPINE/HYDROCO [Concomitant]
     Dates: start: 20140204
  20. ATENOLOL. [Concomitant]
     Active Substance: ATENOLOL
     Dosage: 25.0MG UNKNOWN
     Route: 048
     Dates: start: 20130203
  21. MONTELUKAST SODIUM. [Concomitant]
     Active Substance: MONTELUKAST SODIUM
     Dates: start: 20140221
  22. PRILOSEC [Suspect]
     Active Substance: OMEPRAZOLE MAGNESIUM
     Dosage: GENERIC40.0MG UNKNOWN
     Route: 048
     Dates: start: 20131024
  23. CITALOPRAM [Concomitant]
     Active Substance: CITALOPRAM HYDROBROMIDE
     Dosage: 20.0MG UNKNOWN
     Route: 048
     Dates: start: 20140117
  24. AMOXICILLIN-CLAVULANATE [Concomitant]
     Active Substance: AMOXICILLIN\CLAVULANIC ACID
     Dosage: 500-125 MG
     Route: 048
  25. NEXIUM [Suspect]
     Active Substance: ESOMEPRAZOLE MAGNESIUM
     Dosage: GENERIC UNKNOWN
     Route: 065
  26. AMPHETAMINE [Concomitant]
     Active Substance: AMPHETAMINE
     Dates: start: 20140109
  27. RAMIPRIL. [Concomitant]
     Active Substance: RAMIPRIL
     Dosage: 2.5MG UNKNOWN
     Route: 048
     Dates: start: 20141003
  28. CLOPIDOGREL BISULPHATE [Concomitant]
     Active Substance: CLOPIDOGREL BISULFATE
     Dates: start: 20131003

REACTIONS (3)
  - Rebound acid hypersecretion [Unknown]
  - Renal failure [Unknown]
  - Chronic kidney disease [Not Recovered/Not Resolved]

NARRATIVE: CASE EVENT DATE: 20190107
